FAERS Safety Report 4742654-6 (Version None)
Quarter: 2005Q3

REPORT INFORMATION
  Report Type: 
  Country: None (occurrence: None)
  Receive Date: 20050811
  Receipt Date: 20050805
  Transmission Date: 20060218
  Serious: Yes (Other)
  Sender: FDA-Public Use
  Company Number: US-GLAXOSMITHKLINE-A0569066A

PATIENT
  Age: 64 Year
  Sex: Male
  Weight: 68 kg

DRUGS (1)
  1. COMMIT [Suspect]
     Route: 048
     Dates: start: 20050722

REACTIONS (3)
  - LIP AND/OR ORAL CAVITY CANCER [None]
  - THROAT CANCER [None]
  - TONGUE NEOPLASM MALIGNANT STAGE UNSPECIFIED [None]
